FAERS Safety Report 26054786 (Version 1)
Quarter: 2025Q4

REPORT INFORMATION
  Report Type: Spontaneous
  Country: US (occurrence: US)
  Receive Date: 20251117
  Receipt Date: 20251117
  Transmission Date: 20260118
  Serious: No
  Sender: BIOMARIN
  Company Number: US-SA-2025SA331470

PATIENT
  Age: 42 Year
  Sex: Female

DRUGS (1)
  1. ALDURAZYME [Suspect]
     Active Substance: LARONIDASE
     Indication: Product used for unknown indication
     Dosage: UNK

REACTIONS (4)
  - Blood creatinine increased [Unknown]
  - Blood potassium decreased [Unknown]
  - Blood albumin decreased [Unknown]
  - C-reactive protein increased [Unknown]

NARRATIVE: CASE EVENT DATE: 20251022
